FAERS Safety Report 19877641 (Version 1)
Quarter: 2021Q3

REPORT INFORMATION
  Report Type: Spontaneous
  Country: US (occurrence: US)
  Receive Date: 20210923
  Receipt Date: 20210923
  Transmission Date: 20211014
  Serious: Yes (Hospitalization)
  Sender: FDA-Public Use
  Company Number: NVSC2021US214565

PATIENT
  Age: 40 Year
  Sex: Male

DRUGS (2)
  1. PROMACTA [Suspect]
     Active Substance: ELTROMBOPAG OLAMINE
     Indication: APLASTIC ANAEMIA
     Dosage: 75 MG
     Route: 065
     Dates: start: 20210323
  2. PROMACTA [Suspect]
     Active Substance: ELTROMBOPAG OLAMINE
     Dosage: 37.5 MG, QD
     Route: 048
     Dates: start: 20210917

REACTIONS (1)
  - Blood urine [Unknown]

NARRATIVE: CASE EVENT DATE: 20210901
